FAERS Safety Report 25169704 (Version 2)
Quarter: 2025Q2

REPORT INFORMATION
  Report Type: Spontaneous
  Country: US (occurrence: US)
  Receive Date: 20250407
  Receipt Date: 20250519
  Transmission Date: 20250716
  Serious: No
  Sender: BIOMARIN
  Company Number: US-SANOFI-02465621

PATIENT

DRUGS (2)
  1. ALDURAZYME [Suspect]
     Active Substance: LARONIDASE
     Indication: Mucopolysaccharidosis I
     Dosage: UNK UNK, QOW
     Route: 042
  2. ALDURAZYME [Suspect]
     Active Substance: LARONIDASE
     Dosage: 11.6 MILLIGRAM, QW
     Route: 042
     Dates: start: 202311

REACTIONS (1)
  - Product prescribing error [Unknown]
